FAERS Safety Report 10470437 (Version 2)
Quarter: 2014Q3

REPORT INFORMATION
  Report Type: Spontaneous
  Country: US (occurrence: US)
  Receive Date: 20140923
  Receipt Date: 20140923
  Transmission Date: 20150326
  Serious: No
  Sender: FDA-Public Use
  Company Number: US-009507513-1408USA011026

PATIENT
  Age: 54 Year
  Sex: Male
  Weight: 79.82 kg

DRUGS (1)
  1. PEGINTRON [Suspect]
     Active Substance: PEGINTERFERON ALFA-2B
     Indication: HEPATITIS C
     Dosage: 120 MICROGRAM, ONCE WEEKLY; ALSO REPORTED AS:0.5ML ONCE WEEKLY
     Route: 058
     Dates: start: 20140630

REACTIONS (5)
  - Wrong technique in drug usage process [Unknown]
  - Product container issue [Recovered/Resolved]
  - Underdose [Recovered/Resolved]
  - No adverse event [Unknown]
  - Product container issue [Recovered/Resolved]

NARRATIVE: CASE EVENT DATE: 2014
